FAERS Safety Report 20870777 (Version 1)
Quarter: 2022Q2

REPORT INFORMATION
  Report Type: Spontaneous
  Country: US (occurrence: US)
  Receive Date: 20220525
  Receipt Date: 20220525
  Transmission Date: 20220721
  Serious: Yes (Other)
  Sender: FDA-Public Use
  Company Number: US-SA-SAC20220523000573

PATIENT
  Age: 73 Year
  Sex: Male

DRUGS (1)
  1. ZANTAC [Suspect]
     Active Substance: RANITIDINE HYDROCHLORIDE
     Indication: Abdominal discomfort
     Dosage: 300 MG,FREQUENCY: OTHER
     Route: 065
     Dates: start: 200901, end: 201901

REACTIONS (1)
  - Lung carcinoma cell type unspecified stage I [Recovering/Resolving]

NARRATIVE: CASE EVENT DATE: 20201101
